FAERS Safety Report 4315748-7 (Version None)
Quarter: 2004Q1

REPORT INFORMATION
  Report Type: 
  Country: None (occurrence: None)
  Receive Date: 20040309
  Receipt Date: 20040207
  Transmission Date: 20041129
  Serious: Yes (Hospitalization, Other)
  Sender: FDA-Public Use
  Company Number: MAG-2003-0000184

PATIENT
  Age: 10 Year
  Sex: Female

DRUGS (1)
  1. POVIDONE IODINE [Suspect]
     Indication: LOCAL ANTIBACTERIAL THERAPY
     Dosage: TOPICAL
     Route: 061
     Dates: start: 20030326, end: 20030326

REACTIONS (3)
  - BLISTER [None]
  - CAUSTIC INJURY [None]
  - KELOID SCAR [None]
